FAERS Safety Report 21204688 (Version 1)
Quarter: 2022Q3

REPORT INFORMATION
  Report Type: Spontaneous
  Country: US (occurrence: US)
  Receive Date: 20220812
  Receipt Date: 20220812
  Transmission Date: 20221027
  Serious: No
  Sender: FDA-Public Use
  Company Number: US-009507513-2207USA006687

PATIENT
  Age: 43 Year
  Sex: Female

DRUGS (9)
  1. STROMECTOL [Suspect]
     Active Substance: IVERMECTIN
     Indication: Strongyloidiasis
     Route: 048
  2. PREDNISONE [Concomitant]
     Active Substance: PREDNISONE
     Indication: Immunosuppression
     Dosage: 40 MILLIGRAM, DAILY
  3. HYDROXYCHLOROQUINE [Concomitant]
     Active Substance: HYDROXYCHLOROQUINE
     Indication: Immunosuppression
  4. CYCLOPHOSPHAMIDE [Concomitant]
     Active Substance: CYCLOPHOSPHAMIDE
     Indication: Immunosuppression
  5. CIPROFLOXACIN [Concomitant]
     Active Substance: CIPROFLOXACIN
     Indication: Colitis
  6. METRONIDAZOLE [Concomitant]
     Active Substance: METRONIDAZOLE
     Indication: Colitis
  7. METRONIDAZOLE [Concomitant]
     Active Substance: METRONIDAZOLE
     Indication: Strongyloidiasis
  8. AZTREONAM [Concomitant]
     Active Substance: AZTREONAM
     Indication: Strongyloidiasis
  9. VORICONAZOLE [Concomitant]
     Active Substance: VORICONAZOLE
     Indication: Strongyloidiasis

REACTIONS (1)
  - Product use in unapproved indication [Unknown]
